FAERS Safety Report 23591966 (Version 1)
Quarter: 2024Q1

REPORT INFORMATION
  Report Type: Spontaneous
  Country: US (occurrence: US)
  Receive Date: 20240304
  Receipt Date: 20240304
  Transmission Date: 20240410
  Serious: Yes (Other)
  Sender: FDA-Public Use
  Company Number: US-APELLIS PHARMACEUTICALS-APL-2024-003585

PATIENT
  Age: 33 Year
  Sex: Male

DRUGS (1)
  1. SYFOVRE [Suspect]
     Active Substance: PEGCETACOPLAN
     Indication: Product used for unknown indication
     Dosage: 15 MILLIGRAM
     Dates: start: 20231002, end: 20231002

REACTIONS (2)
  - Eye inflammation [Not Recovered/Not Resolved]
  - Choroidal neovascularisation [Unknown]

NARRATIVE: CASE EVENT DATE: 20231006
